FAERS Safety Report 12186840 (Version 1)
Quarter: 2016Q1

REPORT INFORMATION
  Report Type: Spontaneous
  Country: US (occurrence: US)
  Receive Date: 20160317
  Receipt Date: 20160317
  Transmission Date: 20160526
  Serious: No
  Sender: FDA-Public Use
  Company Number: US-PFIZER INC-2016160883

PATIENT
  Age: 47 Year
  Sex: Female

DRUGS (5)
  1. DILANTIN [Suspect]
     Active Substance: PHENYTOIN
     Dosage: UNK
  2. DECADRON [Suspect]
     Active Substance: DEXAMETHASONE
     Dosage: UNK
  3. DILAUDID [Suspect]
     Active Substance: HYDROMORPHONE HYDROCHLORIDE
     Dosage: UNK
  4. GEODON [Suspect]
     Active Substance: ZIPRASIDONE HYDROCHLORIDE\ZIPRASIDONE MESYLATE
     Dosage: UNK
  5. SUCCINYLCHOLINE [Suspect]
     Active Substance: SUCCINYLCHOLINE
     Dosage: UNK

REACTIONS (1)
  - Drug hypersensitivity [Unknown]
